FAERS Safety Report 23364744 (Version 1)
Quarter: 2024Q1

REPORT INFORMATION
  Report Type: Spontaneous
  Country: RU (occurrence: RU)
  Receive Date: 20240104
  Receipt Date: 20240104
  Transmission Date: 20240409
  Serious: Yes (Hospitalization, Other)
  Sender: FDA-Public Use
  Company Number: RU-GILEAD-2023-0656751

PATIENT
  Age: 9 Year
  Sex: Female

DRUGS (5)
  1. BIKTARVY [Suspect]
     Active Substance: BICTEGRAVIR SODIUM\EMTRICITABINE\TENOFOVIR ALAFENAMIDE FUMARATE
     Indication: Product used for unknown indication
     Dosage: UNK
     Route: 065
     Dates: start: 20231113
  2. URSODIOL [Concomitant]
     Active Substance: URSODIOL
  3. RALTEGRAVIR [Concomitant]
     Active Substance: RALTEGRAVIR
  4. ABACAVIR [Concomitant]
     Active Substance: ABACAVIR
  5. LAMIVUDINE [Concomitant]
     Active Substance: LAMIVUDINE

REACTIONS (3)
  - Hepatitis [Recovered/Resolved]
  - Alanine aminotransferase increased [Recovered/Resolved]
  - Aspartate aminotransferase increased [Recovered/Resolved]

NARRATIVE: CASE EVENT DATE: 20231210
